FAERS Safety Report 4597710-2 (Version None)
Quarter: 2005Q1

REPORT INFORMATION
  Report Type: 
  Country: None (occurrence: None)
  Receive Date: 20050125
  Receipt Date: 20040819
  Transmission Date: 20050727
  Serious: No
  Sender: FDA-Public Use
  Company Number: USA040875937

PATIENT
  Age: 83 Year
  Sex: Female
  Weight: 52 kg

DRUGS (2)
  1. FORTEO [Suspect]
     Indication: VITAMIN D
     Dates: start: 20040813
  2. FOSAMAX [Concomitant]

REACTIONS (1)
  - INJECTION SITE PAIN [None]
